FAERS Safety Report 11192352 (Version 1)
Quarter: 2015Q2

REPORT INFORMATION
  Report Type: Spontaneous
  Country: CN (occurrence: CN)
  Receive Date: 20150616
  Receipt Date: 20150616
  Transmission Date: 20150821
  Serious: Yes (Death, Hospitalization, Other)
  Sender: FDA-Public Use
  Company Number: CN-ACTAVIS-2015-11353

PATIENT
  Age: 43 Year
  Sex: Male

DRUGS (7)
  1. GLUCOSE (UNKNOWN) [Suspect]
     Active Substance: DEXTROSE
     Indication: VENOMOUS BITE
     Dosage: 250 ML OF 5%
     Route: 042
     Dates: start: 20110903
  2. CLINDAMYCIN [Concomitant]
     Active Substance: CLINDAMYCIN\CLINDAMYCIN PHOSPHATE
     Indication: VENOMOUS BITE
     Dosage: 0.9 G, SINGLE
     Route: 042
     Dates: start: 20110903
  3. CALCIUM GLUCONATE (UNKNOWN) [Suspect]
     Active Substance: CALCIUM GLUCONATE
     Indication: VENOMOUS BITE
     Dosage: 100 MG/ML = 10 ML SINGLE DOSE VIAL (2 VIALS)
     Route: 042
     Dates: start: 20110903
  4. DEXAMETHASONE (UNKNOWN) [Suspect]
     Active Substance: DEXAMETHASONE
     Indication: VENOMOUS BITE
     Dosage: 5 MG, SINGLE
     Route: 065
     Dates: start: 20110903
  5. VITAMIN C [Concomitant]
     Active Substance: ASCORBIC ACID
     Indication: VENOMOUS BITE
     Dosage: 3 G, SINGLE
     Route: 041
     Dates: start: 20110903
  6. AMOXICILLIN. [Suspect]
     Active Substance: AMOXICILLIN
     Indication: VENOMOUS BITE
     Dosage: UNK
     Route: 061
  7. SALINE [Concomitant]
     Active Substance: SODIUM CHLORIDE
     Indication: VENOMOUS BITE
     Dosage: 0.9%
     Route: 042
     Dates: start: 20110903

REACTIONS (26)
  - Arrhythmia [Fatal]
  - Quadriplegia [Unknown]
  - Dyspnoea [None]
  - Cyanosis [None]
  - Pulmonary oedema [None]
  - Visceral congestion [None]
  - Arteriosclerosis coronary artery [None]
  - Hepatic congestion [None]
  - Metabolic acidosis [Unknown]
  - Hypokalaemia [Fatal]
  - Chest discomfort [None]
  - Cell death [None]
  - Coronary artery stenosis [None]
  - Hepatic steatosis [None]
  - Renal venous congestion [None]
  - Intentional product use issue [Unknown]
  - White blood cell count increased [None]
  - Neutrophil percentage increased [None]
  - Heart rate increased [None]
  - Spleen congestion [None]
  - Renal tubular disorder [None]
  - Diabetes mellitus [Fatal]
  - Palpitations [None]
  - Wheezing [None]
  - Cardiac disorder [None]
  - Pulmonary congestion [None]
